FAERS Safety Report 8074236-5 (Version None)
Quarter: 2012Q1

REPORT INFORMATION
  Report Type: 
  Country: None (occurrence: None)
  Receive Date: 20120126
  Receipt Date: 20120116
  Transmission Date: 20120608
  Serious: Yes (Other)
  Sender: FDA-Public Use
  Company Number: DE-ALLERGAN-1112649US

PATIENT
  Age: 60 Year
  Sex: Female

DRUGS (1)
  1. OZURDEX [Suspect]
     Indication: RETINAL VEIN OCCLUSION
     Dosage: UNK
     Route: 031
     Dates: start: 20110801, end: 20110801

REACTIONS (3)
  - CORNEAL DISORDER [None]
  - INCORRECT DRUG ADMINISTRATION DURATION [None]
  - INTRAOCULAR PRESSURE DECREASED [None]
